FAERS Safety Report 5165144-8 (Version None)
Quarter: 2006Q4

REPORT INFORMATION
  Report Type: 
  Country: None (occurrence: None)
  Receive Date: 20061127
  Receipt Date: 20061110
  Transmission Date: 20070319
  Serious: Yes (Other)
  Sender: FDA-Public Use
  Company Number: HQWYE320113NOV06

PATIENT
  Sex: Female

DRUGS (1)
  1. PREMARIN [Suspect]
     Indication: HYSTERECTOMY
     Dosage: 0.625 MG 1X PER 1 DAY,

REACTIONS (2)
  - CHOLECYSTECTOMY [None]
  - HIP FRACTURE [None]
